FAERS Safety Report 8800776 (Version 1)
Quarter: 2012Q4

REPORT INFORMATION
  Report Type: 
  Country: US (occurrence: US)
  Receive Date: 20120921
  Receipt Date: 20120921
  Transmission Date: 20130627
  Serious: Yes (Hospitalization)
  Sender: FDA-Public Use
  Company Number: US-BAYER-2012-095227

PATIENT
  Age: 60 Year
  Sex: Male

DRUGS (1)
  1. NIFEDIPINE [Suspect]
     Dosage: 30 DF, ONCE
     Route: 048

REACTIONS (4)
  - Toxicity to various agents [None]
  - Hypotension [None]
  - Renal failure acute [Recovered/Resolved]
  - Small intestinal obstruction [Recovered/Resolved]
